FAERS Safety Report 23081686 (Version 2)
Quarter: 2023Q4

REPORT INFORMATION
  Report Type: Other
  Country: EG (occurrence: EG)
  Receive Date: 20231019
  Receipt Date: 20231030
  Transmission Date: 20240110
  Serious: Yes (Death)
  Sender: FDA-Public Use
  Company Number: EG-CHIESI-2023CHF05396

PATIENT
  Age: 0 Year
  Sex: Female
  Weight: 1.29 kg

DRUGS (4)
  1. CUROSURF [Suspect]
     Active Substance: PORACTANT ALFA
     Indication: Respiratory distress
     Dosage: 2.5 MILLIGRAM/KILOGRAM, (1X)
     Dates: start: 20230920, end: 20230920
  2. SULTAMICILLIN [Concomitant]
     Active Substance: SULTAMICILLIN
     Indication: Product used for unknown indication
     Dosage: UNK, Q12H
  3. GENTAMICIN [Concomitant]
     Active Substance: GENTAMICIN
     Indication: Product used for unknown indication
     Dosage: UNK
  4. CALCIUM GLUCONATE [Concomitant]
     Active Substance: CALCIUM GLUCONATE
     Indication: Product used for unknown indication
     Dosage: UNK

REACTIONS (1)
  - Respiratory failure [Fatal]

NARRATIVE: CASE EVENT DATE: 20230921
